FAERS Safety Report 8065110-9 (Version None)
Quarter: 2012Q1

REPORT INFORMATION
  Report Type: 
  Country: None (occurrence: None)
  Receive Date: 20120117
  Receipt Date: 20120106
  Transmission Date: 20120608
  Serious: Yes (Hospitalization, Other)
  Sender: FDA-Public Use
  Company Number: 2011SP045872

PATIENT
  Age: 51 Year
  Sex: Female
  Weight: 77.1115 kg

DRUGS (5)
  1. PEG-INTRON [Suspect]
     Indication: HEPATITIS C
     Dosage: 120 MCG;QW;SC
     Route: 058
     Dates: start: 20110716
  2. VICTRELIS [Suspect]
     Indication: HEPATITIS C
     Dosage: 800 MG;
     Dates: start: 20110701, end: 20111101
  3. RIBAVIRIN [Suspect]
     Indication: HEPATITIS C
     Dosage: 1000 MG; 800 MG;
     Dates: start: 20110716
  4. BUPROPION HYDROCHLORIDE [Concomitant]
  5. XIFAXAN [Concomitant]

REACTIONS (11)
  - ANAEMIA [None]
  - ABDOMINAL PAIN [None]
  - BODY TEMPERATURE INCREASED [None]
  - RENAL IMPAIRMENT [None]
  - BALANCE DISORDER [None]
  - DYSPNOEA [None]
  - ABDOMINAL INFECTION [None]
  - BLOOD GLUCOSE ABNORMAL [None]
  - ASCITES [None]
  - ASTHENIA [None]
  - DIZZINESS [None]
